FAERS Safety Report 24777471 (Version 2)
Quarter: 2025Q1

REPORT INFORMATION
  Report Type: Spontaneous
  Country: HR (occurrence: HR)
  Receive Date: 20241226
  Receipt Date: 20250103
  Transmission Date: 20250408
  Serious: Yes (Hospitalization, Other)
  Sender: FRESENIUS KABI
  Company Number: HR-009507513-2412HRV002649

PATIENT
  Sex: Male

DRUGS (3)
  1. PEMETREXED [Suspect]
     Active Substance: PEMETREXED
     Indication: Non-small cell lung cancer
  2. KEYTRUDA [Suspect]
     Active Substance: PEMBROLIZUMAB
     Indication: Non-small cell lung cancer
  3. CISPLATIN [Suspect]
     Active Substance: CISPLATIN
     Indication: Non-small cell lung cancer

REACTIONS (5)
  - Urosepsis [Unknown]
  - Neutropenia [Unknown]
  - Pneumonia [Unknown]
  - Pneumonitis [Unknown]
  - Lung consolidation [Unknown]

NARRATIVE: CASE EVENT DATE: 20240101
